FAERS Safety Report 16450233 (Version 5)
Quarter: 2019Q4

REPORT INFORMATION
  Report Type: Spontaneous
  Country: BR (occurrence: BR)
  Receive Date: 20190619
  Receipt Date: 20191211
  Transmission Date: 20200122
  Serious: Yes (Other)
  Sender: FDA-Public Use
  Company Number: BR-GLAXOSMITHKLINE-BR2019GSK107672

PATIENT
  Sex: Female
  Weight: 71 kg

DRUGS (1)
  1. NUCALA [Suspect]
     Active Substance: MEPOLIZUMAB
     Indication: ASTHMA
     Dosage: 100 MG, UNK
     Dates: start: 20181222

REACTIONS (13)
  - Product availability issue [Unknown]
  - Cough [Unknown]
  - Product dose omission [Unknown]
  - Vasculitis [Unknown]
  - Asthmatic crisis [Unknown]
  - Inappropriate schedule of product administration [Unknown]
  - Malaise [Unknown]
  - Colitis [Unknown]
  - Dyspnoea [Unknown]
  - Dysphonia [Unknown]
  - Epistaxis [Unknown]
  - Fatigue [Unknown]
  - Pneumonia [Unknown]
